FAERS Safety Report 7339716-6 (Version None)
Quarter: 2011Q1

REPORT INFORMATION
  Report Type: 
  Country: None (occurrence: None)
  Receive Date: 20110304
  Receipt Date: 20110304
  Transmission Date: 20110831
  Serious: Yes (Other)
  Sender: FDA-Public Use
  Company Number: None

PATIENT
  Sex: Female
  Weight: 55.7924 kg

DRUGS (1)
  1. TAMOXIFEN CITRATE [Suspect]
     Indication: BREAST CANCER RECURRENT
     Dosage: 20 MG 1 DAILY PILL
     Dates: start: 20100823, end: 20101128

REACTIONS (5)
  - ABNORMAL BEHAVIOUR [None]
  - INSOMNIA [None]
  - NEUROTRANSMITTER LEVEL ALTERED [None]
  - LABORATORY TEST ABNORMAL [None]
  - FATIGUE [None]
